FAERS Safety Report 8551556-9 (Version None)
Quarter: 2012Q3

REPORT INFORMATION
  Report Type: 
  Country: None (occurrence: None)
  Receive Date: 20120730
  Receipt Date: 20120720
  Transmission Date: 20120928
  Serious: Yes (Hospitalization)
  Sender: FDA-Public Use
  Company Number: US-BAYER-2012-073711

PATIENT
  Age: 26 Year
  Sex: Female
  Weight: 104.31 kg

DRUGS (4)
  1. YASMIN [Suspect]
  2. HYDROCODONE BITARTRATE AND ACETAMINOPHEN [Concomitant]
     Dosage: 5/500 MG, UNK
     Route: 048
  3. AMOXICILLIN [Concomitant]
     Dosage: 500 MG, UNK
     Route: 048
  4. YAZ [Suspect]
     Indication: PREMENSTRUAL SYNDROME

REACTIONS (2)
  - DEEP VEIN THROMBOSIS [None]
  - PULMONARY EMBOLISM [None]
